FAERS Safety Report 17685525 (Version 2)
Quarter: 2022Q1

REPORT INFORMATION
  Report Type: Spontaneous
  Country: DE (occurrence: DE)
  Receive Date: 20200420
  Receipt Date: 20220124
  Transmission Date: 20220423
  Serious: Yes (Other)
  Sender: FDA-Public Use
  Company Number: DE-NOVARTISPH-NVSC2020DE103924

PATIENT

DRUGS (2)
  1. METHOTREXATE [Suspect]
     Active Substance: METHOTREXATE
     Indication: Foetal exposure during pregnancy
     Dosage: MATERNAL DOSE: UNKNOWN
     Route: 064
  2. LEFLUNOMIDE [Suspect]
     Active Substance: LEFLUNOMIDE
     Indication: Foetal exposure during pregnancy
     Dosage: MATERNAL DOSE: UNKNOWN
     Route: 064

REACTIONS (2)
  - Small for dates baby [Unknown]
  - Foetal exposure during pregnancy [Unknown]
